FAERS Safety Report 8998987 (Version 1)
Quarter: 2013Q1

REPORT INFORMATION
  Report Type: Spontaneous
  Country: US (occurrence: US)
  Receive Date: 20130103
  Receipt Date: 20130103
  Transmission Date: 20140127
  Serious: No
  Sender: FDA-Public Use
  Company Number: US-PFIZER INC-2012332379

PATIENT
  Age: 82 Year
  Sex: Male

DRUGS (5)
  1. SUTENT [Suspect]
     Indication: RENAL CANCER
     Dosage: 25 MG, UNK
     Dates: start: 20121211
  2. ASPIRIN [Concomitant]
  3. AVODART [Concomitant]
  4. BENICAR [Concomitant]
  5. LIPITOR [Concomitant]

REACTIONS (1)
  - Blood count abnormal [Unknown]
